FAERS Safety Report 11349927 (Version 6)
Quarter: 2017Q1

REPORT INFORMATION
  Report Type: Report from Study
  Country: US (occurrence: US)
  Receive Date: 20150807
  Receipt Date: 20170324
  Transmission Date: 20170428
  Serious: Yes (Other)
  Sender: FDA-Public Use
  Company Number: PHHY2014US111824

PATIENT
  Age: 39 Year
  Sex: Male

DRUGS (2)
  1. TYLENOL [Concomitant]
     Active Substance: ACETAMINOPHEN
     Indication: HEADACHE
     Route: 065
     Dates: start: 20141007
  2. GILENYA [Suspect]
     Active Substance: FINGOLIMOD HYDROCHLORIDE
     Indication: MULTIPLE SCLEROSIS
     Route: 048

REACTIONS (10)
  - Gastric ulcer haemorrhage [Recovered/Resolved]
  - Bronchitis [Recovered/Resolved]
  - White blood cell count decreased [Unknown]
  - Haemoglobin decreased [Recovered/Resolved]
  - Neuropathy peripheral [Not Recovered/Not Resolved]
  - Blood urea increased [Unknown]
  - Aspartate aminotransferase increased [Recovered/Resolved]
  - Lymphocyte count decreased [Unknown]
  - Paraesthesia [Not Recovered/Not Resolved]
  - Alanine aminotransferase increased [Recovered/Resolved]

NARRATIVE: CASE EVENT DATE: 20130626
